FAERS Safety Report 13252249 (Version 2)
Quarter: 2017Q1

REPORT INFORMATION
  Report Type: Spontaneous
  Country: AR (occurrence: AR)
  Receive Date: 20170220
  Receipt Date: 20170301
  Transmission Date: 20170428
  Serious: No
  Sender: FDA-Public Use
  Company Number: AR-NODEN PHARMA DAC-NOD-2017-000022

PATIENT
  Sex: Male

DRUGS (2)
  1. RASILEZ [Suspect]
     Active Substance: ALISKIREN
     Indication: HYPERTENSION
     Dosage: 1 DF,(300MG) QD
     Route: 065
  2. DIOVAN D [Suspect]
     Active Substance: HYDROCHLOROTHIAZIDE\VALSARTAN
     Indication: HYPERTENSION
     Dosage: VALSARTAN 320 MG, HYDROCHLOROTHIAZIDE 25MG, 1 DF, QD
     Route: 065

REACTIONS (2)
  - Blood pressure increased [Unknown]
  - Nervousness [Recovering/Resolving]
